FAERS Safety Report 10152524 (Version 1)
Quarter: 2014Q2

REPORT INFORMATION
  Report Type: Spontaneous
  Country: US (occurrence: None)
  Receive Date: 20140502
  Receipt Date: 20140502
  Transmission Date: 20141212
  Serious: Yes (Life-Threatening, Hospitalization, Other)
  Sender: FDA-Public Use
  Company Number: None

PATIENT
  Age: 62 Year
  Sex: Female
  Weight: 68.04 kg

DRUGS (3)
  1. CARAFATE [Suspect]
     Indication: PEPTIC ULCER
     Dosage: 1 GM TAB?1 TAB ?1 TAB BEFORE MEALS + 1 @ BEDTIME ?MOUTH
     Route: 048
     Dates: start: 201206, end: 20140326
  2. TENS UNITS [Concomitant]
  3. SULCFAPATE [Concomitant]

REACTIONS (1)
  - Foreign body [None]
